FAERS Safety Report 5194114-9 (Version None)
Quarter: 2006Q4

REPORT INFORMATION
  Report Type: 
  Country: None (occurrence: None)
  Receive Date: 20061226
  Receipt Date: 20061212
  Transmission Date: 20070319
  Serious: Yes (Hospitalization)
  Sender: FDA-Public Use
  Company Number: 232458

PATIENT
  Age: 68 Year
  Sex: Female
  Weight: 93.2 kg

DRUGS (13)
  1. EFALIZUMAB(EFALIZUMAB) PWDR + SOLVENT,INJECTION SOLN, 125MG [Suspect]
     Indication: PSORIASIS
     Dosage: 125 MG, 1/WEEK, SUBCUTANEOUS
     Route: 058
     Dates: start: 20050120, end: 20060620
  2. TOPICAL STEROIDS (TOPICAL STEROID NOS) [Concomitant]
  3. NORVASC [Concomitant]
  4. DETROL LA (TOLTERODINE TARTRATE) [Concomitant]
  5. LASIX [Concomitant]
  6. ACCUPRIL [Concomitant]
  7. HYDROCHLOROTHIAZIDE [Concomitant]
  8. ACTOS [Concomitant]
  9. SINGULAIR [Concomitant]
  10. ZOCOR [Concomitant]
  11. TYLOX (ACETAMINOPHEN, OXYCODONE HYDROCHLORIDE) [Concomitant]
  12. METFORMIN HCL [Concomitant]
  13. FERROUS SULFATE TAB [Concomitant]

REACTIONS (15)
  - ASCITES [None]
  - CARDIOMEGALY [None]
  - CLOSTRIDIUM DIFFICILE COLITIS [None]
  - CLOSTRIDIUM DIFFICILE SEPSIS [None]
  - HAEMATOCRIT DECREASED [None]
  - HAEMOGLOBIN DECREASED [None]
  - HEART RATE INCREASED [None]
  - HEPATITIS C POSITIVE [None]
  - HYPOTENSION [None]
  - LUNG INFILTRATION [None]
  - NAUSEA [None]
  - PROTEIN URINE PRESENT [None]
  - PULMONARY CONGESTION [None]
  - RENAL FAILURE ACUTE [None]
  - WHITE BLOOD CELL COUNT INCREASED [None]
